FAERS Safety Report 26096703 (Version 1)
Quarter: 2025Q4

REPORT INFORMATION
  Report Type: Spontaneous
  Country: EU (occurrence: EU)
  Receive Date: 20251127
  Receipt Date: 20251127
  Transmission Date: 20260118
  Serious: Yes (Hospitalization)
  Sender: TEVA
  Company Number: EU-TEVA-VS-3396681

PATIENT
  Age: 77 Year

DRUGS (2)
  1. METHOTREXATE [Suspect]
     Active Substance: METHOTREXATE
     Indication: Rheumatoid arthritis
     Route: 065
  2. RITUXIMAB [Suspect]
     Active Substance: RITUXIMAB
     Indication: Rheumatoid arthritis
     Dosage: IN MARCH AND APRIL 2022 WITH A 14-DAY INTERVAL
     Route: 065
     Dates: start: 202203, end: 202204

REACTIONS (2)
  - Neutropenia [Recovered/Resolved]
  - Peri-implantitis [Unknown]

NARRATIVE: CASE EVENT DATE: 20220801
